FAERS Safety Report 24545277 (Version 1)
Quarter: 2024Q4

REPORT INFORMATION
  Report Type: Other
  Country: JP (occurrence: None)
  Receive Date: 20241024
  Receipt Date: 20241024
  Transmission Date: 20250114
  Serious: Yes (Hospitalization, Other)
  Sender: DEXCEL LTD.
  Company Number: JP-DEXPHARM-2024-4206

PATIENT
  Age: 64 Year
  Sex: Male

DRUGS (5)
  1. CLARITHROMYCIN [Concomitant]
     Active Substance: CLARITHROMYCIN
     Indication: Urinary tract infection
  2. LANSOPRAZOLE [Suspect]
     Active Substance: LANSOPRAZOLE
  3. ESOMEPRAZOLE [Suspect]
     Active Substance: ESOMEPRAZOLE
  4. NIVOLUMAB [Suspect]
     Active Substance: NIVOLUMAB
     Dosage: 240 MG EVERY 2 WEEKS
  5. PREDNISOLONE [Concomitant]
     Active Substance: PREDNISOLONE
     Indication: Urinary tract infection

REACTIONS (3)
  - Immune-mediated arthritis [Unknown]
  - Decreased appetite [Unknown]
  - Arthralgia [Unknown]
